FAERS Safety Report 18192769 (Version 1)
Quarter: 2020Q3

REPORT INFORMATION
  Report Type: Spontaneous
  Country: US (occurrence: US)
  Receive Date: 20200825
  Receipt Date: 20200825
  Transmission Date: 20201103
  Serious: Yes (Hospitalization)
  Sender: FDA-Public Use
  Company Number: US-ELI_LILLY_AND_COMPANY-US202008005645

PATIENT
  Sex: Female

DRUGS (1)
  1. TRULICITY [Suspect]
     Active Substance: DULAGLUTIDE
     Indication: TYPE 2 DIABETES MELLITUS
     Dosage: 1.5 MG, UNKNOWN
     Route: 058
     Dates: start: 2017

REACTIONS (6)
  - Fall [Unknown]
  - Anal incontinence [Unknown]
  - Fine motor skill dysfunction [Not Recovered/Not Resolved]
  - Pelvic fracture [Unknown]
  - Fractured sacrum [Unknown]
  - Seizure [Unknown]

NARRATIVE: CASE EVENT DATE: 2019
